FAERS Safety Report 20875219 (Version 8)
Quarter: 2022Q2

REPORT INFORMATION
  Report Type: Report from Study
  Country: CH (occurrence: CH)
  Receive Date: 20220526
  Receipt Date: 20220617
  Transmission Date: 20220721
  Serious: Yes (Hospitalization)
  Sender: FDA-Public Use
  Company Number: CH-ABBVIE-22K-151-4409102-00

PATIENT
  Sex: Female

DRUGS (10)
  1. CARBIDOPA\LEVODOPA [Suspect]
     Active Substance: CARBIDOPA\LEVODOPA
     Indication: Parkinson^s disease
     Dosage: MD: 2 ML, CRD: 1.5 ML/H, ED: 1.0 ML 16H THERAPY
     Route: 050
     Dates: start: 20220517, end: 20220519
  2. CARBIDOPA\LEVODOPA [Suspect]
     Active Substance: CARBIDOPA\LEVODOPA
     Dosage: MD: 2 ML, CRD: 2.1 ML/H, ED: 1.0 ML 16H THERAPY
     Route: 050
     Dates: start: 20220519, end: 20220521
  3. CARBIDOPA\LEVODOPA [Suspect]
     Active Substance: CARBIDOPA\LEVODOPA
     Dosage: MD: 2 ML, CRD: 2.1 ML/H, ED: 1.0 ML 16H THERAPY
     Route: 050
     Dates: start: 20220522, end: 20220523
  4. CARBIDOPA\LEVODOPA [Suspect]
     Active Substance: CARBIDOPA\LEVODOPA
     Dosage: MD: 3 ML, CRD: 0.5 ML/H, ED: 0.0 ML
     Route: 050
     Dates: start: 20220523, end: 20220523
  5. CARBIDOPA\LEVODOPA [Suspect]
     Active Substance: CARBIDOPA\LEVODOPA
     Dosage: MD: 3 ML, CRD: 0.7 ML/H, ED: 0.0 ML?16H THERAPY
     Route: 050
     Dates: start: 20220523, end: 20220524
  6. CARBIDOPA\LEVODOPA [Suspect]
     Active Substance: CARBIDOPA\LEVODOPA
     Dosage: MD: 3 ML, CRD: 1.5 ML/H, ED: 0.0 ML
     Route: 050
     Dates: start: 20220524, end: 20220531
  7. CARBIDOPA\LEVODOPA [Suspect]
     Active Substance: CARBIDOPA\LEVODOPA
     Dosage: MD: 3 ML, CRD: 1.9 ML/H, ED: 0.0 ML?16H THERAPY
     Route: 050
     Dates: start: 20220531
  8. BENSERAZIDE HYDROCHLORIDE\LEVODOPA [Concomitant]
     Active Substance: BENSERAZIDE HYDROCHLORIDE\LEVODOPA
     Indication: Product used for unknown indication
     Dosage: LIQUID
     Dates: end: 20220522
  9. NEUPRO [Concomitant]
     Active Substance: ROTIGOTINE
     Indication: Parkinson^s disease
  10. DORMICUM [Concomitant]
     Indication: Product used for unknown indication
     Dosage: INTRAVENOUS
     Dates: start: 20220523, end: 20220524

REACTIONS (19)
  - Abdominal pain [Unknown]
  - Aggression [Recovered/Resolved]
  - Agitation [Recovering/Resolving]
  - Fatigue [Unknown]
  - Wheelchair user [Unknown]
  - Mobility decreased [Not Recovered/Not Resolved]
  - General physical health deterioration [Recovering/Resolving]
  - Somnolence [Unknown]
  - Tremor [Unknown]
  - Confusional state [Recovering/Resolving]
  - Disorientation [Unknown]
  - Akinesia [Unknown]
  - Scapular dyskinesis [Unknown]
  - Hyperkinesia [Unknown]
  - Hallucination [Unknown]
  - Freezing phenomenon [Recovered/Resolved]
  - Freezing phenomenon [Unknown]
  - Unevaluable event [Unknown]
  - Device issue [Unknown]

NARRATIVE: CASE EVENT DATE: 20220101
